FAERS Safety Report 18947698 (Version 2)
Quarter: 2021Q4

REPORT INFORMATION
  Report Type: Spontaneous
  Country: GB (occurrence: GB)
  Receive Date: 20210226
  Receipt Date: 20211022
  Transmission Date: 20220303
  Serious: Yes (Other)
  Sender: FDA-Public Use
  Company Number: None

PATIENT
  Age: 54 Year
  Sex: Female
  Weight: 63 kg

DRUGS (7)
  1. LEVOFLOXACIN [Suspect]
     Active Substance: LEVOFLOXACIN
     Indication: Ill-defined disorder
     Dosage: 500 MILLIGRAM DAILY; 250MG
     Route: 048
     Dates: start: 20210209, end: 20210210
  2. LEVOFLOXACIN [Suspect]
     Active Substance: LEVOFLOXACIN
     Indication: Helicobacter infection
  3. ACCORD HEALTHCARE CLARITHROMYCIN [Concomitant]
     Indication: Ill-defined disorder
  4. ACCORD-UK METRONIDAZOLE [Concomitant]
     Indication: Ill-defined disorder
  5. OMEPRAZOLE [Concomitant]
     Active Substance: OMEPRAZOLE
     Indication: Ill-defined disorder
  6. VITAMIN D3 [Concomitant]
     Active Substance: CHOLECALCIFEROL
     Indication: Ill-defined disorder
  7. ZINC [Concomitant]
     Active Substance: ZINC
     Indication: Ill-defined disorder

REACTIONS (4)
  - Tendon pain [Not Recovered/Not Resolved]
  - Tendon pain [Not Recovered/Not Resolved]
  - Palpitations [Not Recovered/Not Resolved]
  - Blister [Unknown]

NARRATIVE: CASE EVENT DATE: 20210210
